FAERS Safety Report 4584586-2 (Version None)
Quarter: 2005Q1

REPORT INFORMATION
  Report Type: 
  Country: None (occurrence: None)
  Receive Date: 20050125
  Receipt Date: 20040929
  Transmission Date: 20050727
  Serious: No
  Sender: FDA-Public Use
  Company Number: USA040465622

PATIENT
  Age: 64 Year
  Sex: Female
  Weight: 74 kg

DRUGS (2)
  1. FORTEO [Suspect]
     Indication: OSTEOPOROSIS
     Dosage: 20 UG/1 DAY
     Dates: start: 20040301
  2. HYDROCHLOROTHIAZIDE [Concomitant]

REACTIONS (7)
  - ARTHRALGIA [None]
  - BURSA DISORDER [None]
  - INJECTION SITE HAEMORRHAGE [None]
  - INJECTION SITE PAIN [None]
  - NERVOUSNESS [None]
  - PAIN [None]
  - PAIN IN EXTREMITY [None]
